FAERS Safety Report 25202172 (Version 1)
Quarter: 2025Q2

REPORT INFORMATION
  Report Type: Report from Study
  Country: US (occurrence: US)
  Receive Date: 20250416
  Receipt Date: 20250416
  Transmission Date: 20250716
  Serious: Yes (Other)
  Sender: ACADIA PHARMACEUTICALS
  Company Number: US-ACADIA PHARMACEUTICALS INC.-ACA-2025-PIM-004207

PATIENT
  Sex: Male

DRUGS (2)
  1. NUPLAZID [Suspect]
     Active Substance: PIMAVANSERIN TARTRATE
     Indication: Parkinsonism
     Dosage: 10 MILLIGRAM, QD
     Route: 048
     Dates: start: 202412
  2. DROXIDOPA [Concomitant]
     Active Substance: DROXIDOPA

REACTIONS (2)
  - Hallucination [Unknown]
  - General symptom [Unknown]
